FAERS Safety Report 4904559-7 (Version None)
Quarter: 2006Q1

REPORT INFORMATION
  Report Type: 
  Country: None (occurrence: None)
  Receive Date: 20060208
  Receipt Date: 20050916
  Transmission Date: 20060701
  Serious: No
  Sender: FDA-Public Use
  Company Number: US-GLAXOSMITHKLINE-A0574512A

PATIENT
  Age: 55 Year
  Sex: Female

DRUGS (6)
  1. PAXIL [Suspect]
     Indication: MAJOR DEPRESSION
     Dosage: 20MG PER DAY
     Route: 048
     Dates: start: 20050601
  2. SEROQUEL [Concomitant]
  3. UNKNOWN MEDICATION [Concomitant]
     Route: 065
  4. XANAX [Concomitant]
  5. COMBIVENT [Concomitant]
  6. SEREVENT [Concomitant]

REACTIONS (3)
  - ANOREXIA [None]
  - FATIGUE [None]
  - URINARY RETENTION [None]
